FAERS Safety Report 6043388-0 (Version None)
Quarter: 2009Q1

REPORT INFORMATION
  Report Type: 
  Country: None (occurrence: None)
  Receive Date: 20090115
  Receipt Date: 20090105
  Transmission Date: 20090719
  Serious: Yes (Hospitalization)
  Sender: FDA-Public Use
  Company Number: CIP09000005

PATIENT
  Age: 55 Year
  Sex: Male
  Weight: 51.7 kg

DRUGS (9)
  1. ASACOL [Suspect]
     Indication: COLITIS ULCERATIVE
     Dosage: 400 MG  ORAL
     Route: 048
  2. SUNITINIB MALATE (SUNITINIB MALATE) [Suspect]
     Indication: RENAL CELL CARCINOMA
     Dosage: 50 MG CYCLIC ONCE DAILY, ORAL; 50 MG, CYCLIC 1/D, ORAL
     Route: 048
     Dates: start: 20070614, end: 20080808
  3. SUNITINIB MALATE (SUNITINIB MALATE) [Suspect]
     Indication: RENAL CELL CARCINOMA
     Dosage: 50 MG CYCLIC ONCE DAILY, ORAL; 50 MG, CYCLIC 1/D, ORAL
     Route: 048
     Dates: start: 20070801
  4. SUNITINIB MALATE (SUNITINIB MALATE) [Suspect]
     Indication: RENAL CELL CARCINOMA
     Dosage: 50 MG CYCLIC ONCE DAILY, ORAL; 50 MG, CYCLIC 1/D, ORAL
     Route: 048
     Dates: start: 20070815
  5. SORAFENIB (SORAFENIB) [Suspect]
     Indication: RENAL CELL CARCINOMA
     Dosage: 400 MG TWICE DAILY, ORAL; ORAL
     Route: 048
     Dates: start: 20070614, end: 20070807
  6. SORAFENIB (SORAFENIB) [Suspect]
     Indication: RENAL CELL CARCINOMA
     Dosage: 400 MG TWICE DAILY, ORAL; ORAL
     Route: 048
     Dates: start: 20070815
  7. PLACEBO() [Suspect]
     Dates: start: 20070614
  8. OTHER ANTI-ASTHMATICS, INHALANTS [Concomitant]
  9. ANTIFUNGALS FOR TOPICAL [Concomitant]

REACTIONS (17)
  - ABDOMINAL PAIN LOWER [None]
  - ANAEMIA [None]
  - BRONCHOSPASM [None]
  - CHRONIC OBSTRUCTIVE PULMONARY DISEASE [None]
  - CLOSTRIDIUM DIFFICILE COLITIS [None]
  - DIARRHOEA HAEMORRHAGIC [None]
  - DYSPNOEA [None]
  - ENTEROCOLITIS INFECTIOUS [None]
  - INSOMNIA [None]
  - LOWER GASTROINTESTINAL HAEMORRHAGE [None]
  - PALMAR-PLANTAR ERYTHRODYSAESTHESIA SYNDROME [None]
  - PERINEAL PAIN [None]
  - PRURITUS [None]
  - PRURITUS GENITAL [None]
  - RASH [None]
  - RECTAL HAEMORRHAGE [None]
  - SCROTAL PAIN [None]
